FAERS Safety Report 9209211 (Version 1)
Quarter: 2013Q1

REPORT INFORMATION
  Report Type: Spontaneous
  Country: US (occurrence: None)
  Receive Date: 20120817
  Receipt Date: 20120817
  Transmission Date: 20140127
  Serious: Yes (Other)
  Sender: FDA-Public Use
  Company Number: 201111102

PATIENT
  Age: 49 Year
  Sex: Female

DRUGS (4)
  1. LIORESAL INTRATHECAL (BACLOFEN INJECTION) [Suspect]
     Indication: MUSCLE SPASTICITY
     Route: 037
  2. SUFENTANIL [Concomitant]
  3. BUPIVACAINE [Concomitant]
  4. BACLOFEN [Concomitant]

REACTIONS (1)
  - Pain [None]
